FAERS Safety Report 24846378 (Version 1)
Quarter: 2025Q1

REPORT INFORMATION
  Report Type: Spontaneous
  Country: PH (occurrence: PH)
  Receive Date: 20250115
  Receipt Date: 20250115
  Transmission Date: 20250409
  Serious: Yes (Hospitalization)
  Sender: PFIZER
  Company Number: PH-PFIZER INC-PV202500006098

PATIENT
  Sex: Female

DRUGS (1)
  1. IBRANCE [Suspect]
     Active Substance: PALBOCICLIB

REACTIONS (4)
  - Abdominal pain upper [Unknown]
  - Dyspnoea [Unknown]
  - Pulmonary oedema [Unknown]
  - Ascites [Unknown]
